FAERS Safety Report 4803488-7 (Version None)
Quarter: 2005Q4

REPORT INFORMATION
  Report Type: 
  Country: None (occurrence: None)
  Receive Date: 20051019
  Receipt Date: 20050812
  Transmission Date: 20060501
  Serious: Yes (Disabling, Other)
  Sender: FDA-Public Use
  Company Number: PHFR2005GB02748

PATIENT
  Age: 29 Year
  Sex: Male

DRUGS (1)
  1. TEGRETOL [Suspect]
     Indication: CONVULSION
     Dosage: 2000MG/DAY
     Route: 048
     Dates: start: 20041001

REACTIONS (2)
  - DIABETES MELLITUS [None]
  - NO ADVERSE EFFECT [None]
